FAERS Safety Report 6401053-1 (Version None)
Quarter: 2009Q4

REPORT INFORMATION
  Report Type: 
  Country: None (occurrence: None)
  Receive Date: 20091013
  Receipt Date: 20091013
  Transmission Date: 20100525
  Serious: Yes (Other)
  Sender: FDA-Public Use
  Company Number: None

PATIENT
  Age: 16 Day
  Sex: Female
  Weight: 4.0824 kg

DRUGS (1)
  1. GENTAK [Suspect]
     Indication: CONJUNCTIVITIS
     Dosage: HALF INCH BID OPTHALMIC
     Dates: start: 20090927, end: 20090928

REACTIONS (3)
  - EYELID BLEEDING [None]
  - EYELID DISORDER [None]
  - SCAB [None]
